APPROVED DRUG PRODUCT: ORAVERSE
Active Ingredient: PHENTOLAMINE MESYLATE
Strength: 0.4MG/1.7ML
Dosage Form/Route: INJECTABLE;INJECTION
Application: N022159 | Product #001
Applicant: SEPTODONT HOLDING SAS
Approved: May 9, 2008 | RLD: Yes | RS: Yes | Type: RX